FAERS Safety Report 21860429 (Version 1)
Quarter: 2023Q1

REPORT INFORMATION
  Report Type: Spontaneous
  Country: US (occurrence: US)
  Receive Date: 20230113
  Receipt Date: 20230113
  Transmission Date: 20230417
  Serious: No
  Sender: FDA-Public Use
  Company Number: 20220118193(0)

PATIENT
  Age: 75 Year
  Sex: Female
  Weight: 49.5 kg

DRUGS (4)
  1. URSODIOL [Suspect]
     Active Substance: URSODIOL
     Indication: Product used for unknown indication
     Dosage: UNK
     Route: 065
  2. MACITENTAN [Suspect]
     Active Substance: MACITENTAN
     Indication: Pulmonary arterial hypertension
     Dosage: OPSUMIT 10MG ORALLY DAILY, 10MG, 1 IN 1 D
     Route: 048
  3. ELIQUIS [Concomitant]
     Active Substance: APIXABAN
     Indication: Product used for unknown indication
     Dosage: UNK
     Route: 065
  4. ADEMPAS [Concomitant]
     Active Substance: RIOCIGUAT
     Indication: Product used for unknown indication
     Dosage: UNK
     Route: 065

REACTIONS (20)
  - COVID-19 [Unknown]
  - Fall [Unknown]
  - Contusion [Unknown]
  - Skin laceration [Unknown]
  - Red blood cell count decreased [Unknown]
  - White blood cell count decreased [Unknown]
  - Platelet count decreased [Unknown]
  - Tooth extraction [Unknown]
  - Anxiety [Unknown]
  - Medical device site pain [Not Recovered/Not Resolved]
  - Impaired healing [Not Recovered/Not Resolved]
  - Loss of personal independence in daily activities [Not Recovered/Not Resolved]
  - Insomnia [Not Recovered/Not Resolved]
  - Nocturia [Not Recovered/Not Resolved]
  - Thinking abnormal [Not Recovered/Not Resolved]
  - Eating disorder [Unknown]
  - Dyspnoea [Unknown]
  - Weight decreased [Not Recovered/Not Resolved]
  - Fatigue [Unknown]
  - Diarrhoea [Unknown]

NARRATIVE: CASE EVENT DATE: 20211101
